FAERS Safety Report 23389976 (Version 2)
Quarter: 2025Q2

REPORT INFORMATION
  Report Type: Spontaneous
  Country: US (occurrence: US)
  Receive Date: 20240111
  Receipt Date: 20250602
  Transmission Date: 20250717
  Serious: Yes (Hospitalization, Other)
  Sender: NOVO NORDISK
  Company Number: US-NOVOPROD-1159253

PATIENT
  Age: 75 Year
  Sex: Male

DRUGS (1)
  1. OZEMPIC [Suspect]
     Active Substance: SEMAGLUTIDE
     Indication: Type 2 diabetes mellitus
     Route: 058
     Dates: start: 2019

REACTIONS (14)
  - Cyanosis [Unknown]
  - Rib fracture [Unknown]
  - Loss of consciousness [Recovered/Resolved]
  - Coronary artery occlusion [Recovered/Resolved]
  - Dehydration [Recovered/Resolved]
  - Blood potassium decreased [Recovered/Resolved]
  - Eczema [Not Recovered/Not Resolved]
  - Cardiac operation [Unknown]
  - Gastrointestinal disorder [Not Recovered/Not Resolved]
  - Hypertension [Unknown]
  - Condition aggravated [Unknown]
  - Ill-defined disorder [Unknown]
  - Abdominal pain upper [Not Recovered/Not Resolved]
  - Diarrhoea [Not Recovered/Not Resolved]

NARRATIVE: CASE EVENT DATE: 20200101
